FAERS Safety Report 9477742 (Version 2)
Quarter: 2013Q3

REPORT INFORMATION
  Report Type: Report from Study
  Country: US (occurrence: US)
  Receive Date: 20130827
  Receipt Date: 20130827
  Transmission Date: 20140515
  Serious: Yes (Hospitalization)
  Sender: FDA-Public Use
  Company Number: US-009507513-1308USA004002

PATIENT
  Age: 50 Year
  Sex: Female
  Weight: 74.4 kg

DRUGS (6)
  1. VORINOSTAT [Suspect]
     Indication: DIFFUSE LARGE B-CELL LYMPHOMA
     Dosage: 400 MG, QD ON DAYS 1-5; CYCLE = 21 DAYS
     Route: 048
     Dates: start: 20130723, end: 20130727
  2. RITUXIMAB [Suspect]
     Indication: DIFFUSE LARGE B-CELL LYMPHOMA
     Dosage: 375 MG/M2, IV INFUSION ON DAY 3; CYCLE = 21 DAYS
     Route: 042
     Dates: start: 20130725, end: 20130725
  3. CYCLOPHOSPHAMIDE [Suspect]
     Indication: DIFFUSE LARGE B-CELL LYMPHOMA
     Dosage: 750 MG/M2, OVER 30-60 MINUTES ON DAY 3; CYCLE = 21 DAYS
     Route: 042
     Dates: start: 20130725, end: 20130725
  4. DOXORUBICIN [Suspect]
     Indication: DIFFUSE LARGE B-CELL LYMPHOMA
     Dosage: 50 MG/M2, IVP ON DAY 3; CYCLE = 21 DAYS
     Dates: start: 20130725, end: 20130725
  5. VINCRISTINE [Suspect]
     Indication: DIFFUSE LARGE B-CELL LYMPHOMA
     Dosage: 1.4 MG/M2, IVP ON DAY 3; CYCLE = 21 DAYS
     Dates: start: 20130725, end: 20130725
  6. PREDNISONE [Suspect]
     Indication: DIFFUSE LARGE B-CELL LYMPHOMA
     Dosage: 100 MG, QD ON DAYS 3-7; CYCLE = 21 DAYS
     Route: 048
     Dates: start: 201307, end: 20130730

REACTIONS (4)
  - Febrile neutropenia [Recovered/Resolved]
  - Dehydration [Recovered/Resolved]
  - Hypokalaemia [Recovered/Resolved]
  - Vomiting [Recovered/Resolved]
